FAERS Safety Report 9288782 (Version 2)
Quarter: 2013Q3

REPORT INFORMATION
  Report Type: Spontaneous
  Country: US (occurrence: US)
  Receive Date: 20130514
  Receipt Date: 20130702
  Transmission Date: 20140515
  Serious: Yes (Other)
  Sender: FDA-Public Use
  Company Number: US-ASTRAZENECA-2013SE32782

PATIENT
  Age: 53 Year
  Sex: Female
  Weight: 80.7 kg

DRUGS (7)
  1. SYMBICORT [Suspect]
     Indication: ASTHMA
     Dosage: 160/4.5 BID
     Route: 055
     Dates: start: 201304, end: 201305
  2. OMEPRAZOLE [Suspect]
     Route: 048
  3. SYNTHROID [Concomitant]
  4. LORTAB [Concomitant]
  5. CYMBALTA [Concomitant]
  6. GABAPENTIN [Concomitant]
  7. MELATONIN [Concomitant]

REACTIONS (3)
  - Oesophageal candidiasis [Recovered/Resolved]
  - Gastrooesophageal reflux disease [Unknown]
  - Dyspepsia [Unknown]
